FAERS Safety Report 7394989-9 (Version None)
Quarter: 2011Q2

REPORT INFORMATION
  Report Type: 
  Country: None (occurrence: None)
  Receive Date: 20110405
  Receipt Date: 20110309
  Transmission Date: 20111010
  Serious: No
  Sender: FDA-Public Use
  Company Number: US-B.I. PHARMACEUTICALS,INC./RIDGEFIELD-2011-BP-07517BP

PATIENT
  Sex: Female

DRUGS (21)
  1. ALLOPURINOL [Concomitant]
     Indication: GOUT
  2. PRADAXA [Suspect]
     Indication: ATRIAL FIBRILLATION
     Route: 048
     Dates: start: 20110307, end: 20110307
  3. INSULIN [Concomitant]
     Indication: DIABETES MELLITUS
  4. MIRALAX [Concomitant]
     Indication: CONSTIPATION
  5. NEURONTIN [Concomitant]
  6. ZETIA [Concomitant]
     Indication: BLOOD CHOLESTEROL INCREASED
  7. LASIX [Concomitant]
     Indication: FLUID RETENTION
  8. LISINOPRIL [Concomitant]
     Indication: ATRIAL FIBRILLATION
  9. TIAZAC [Concomitant]
     Indication: ATRIAL FIBRILLATION
  10. CRESTOR [Concomitant]
     Indication: BLOOD CHOLESTEROL INCREASED
  11. CYMBALTA [Concomitant]
     Indication: DEPRESSION
  12. COREG [Concomitant]
     Indication: ATRIAL FIBRILLATION
  13. GLIMPIRIDE [Concomitant]
     Indication: DIABETES MELLITUS
  14. LOVAZA [Concomitant]
     Indication: PROPHYLAXIS
  15. NITROGLYCERIN [Concomitant]
     Indication: CHEST PAIN
  16. PANTOPRAZOLE [Concomitant]
     Indication: GASTROOESOPHAGEAL REFLUX DISEASE
  17. AMIODARONE HCL [Concomitant]
     Indication: ATRIAL FIBRILLATION
  18. CORDARONE [Concomitant]
     Indication: ATRIAL FIBRILLATION
  19. ADVAIR DISKUS 100/50 [Concomitant]
     Indication: DYSPNOEA
  20. ASPIRIN [Concomitant]
     Indication: PROPHYLAXIS
  21. BYETTA [Concomitant]
     Indication: DIABETES MELLITUS

REACTIONS (2)
  - DEPRESSION [None]
  - FEAR [None]
